FAERS Safety Report 16646130 (Version 1)
Quarter: 2019Q3

REPORT INFORMATION
  Report Type: Spontaneous
  Country: US (occurrence: US)
  Receive Date: 20190730
  Receipt Date: 20190730
  Transmission Date: 20191004
  Serious: Yes (Hospitalization, Other)
  Sender: FDA-Public Use
  Company Number: US-AUROBINDO-AUR-APL-2019-043687

PATIENT

DRUGS (1)
  1. FLUOXETINE [Suspect]
     Active Substance: FLUOXETINE HYDROCHLORIDE
     Indication: ANOREXIA NERVOSA
     Dosage: 60 MILLIGRAM, DAILY FOR 1.5 YEARS

REACTIONS (22)
  - Urine osmolarity decreased [Unknown]
  - Suicidal ideation [Unknown]
  - Bradycardia [Recovered/Resolved]
  - Lethargy [Unknown]
  - Blood osmolarity decreased [Unknown]
  - Weight decreased [Unknown]
  - Diabetes insipidus [Unknown]
  - Eating disorder [Unknown]
  - Pericardial effusion [Unknown]
  - Hypotension [Recovered/Resolved]
  - Hyperadrenocorticism [Unknown]
  - Hypokalaemia [Unknown]
  - Asthenia [Unknown]
  - Transaminases increased [Unknown]
  - Hypoglycaemia [Unknown]
  - Hyponatraemia [Unknown]
  - Polyuria [Recovered/Resolved]
  - Pneumomediastinum [Recovered/Resolved]
  - Hyperferritinaemia [Unknown]
  - Hypophosphataemia [Unknown]
  - Fluid imbalance [Unknown]
  - Nocturia [Unknown]
